FAERS Safety Report 18709856 (Version 8)
Quarter: 2021Q1

REPORT INFORMATION
  Report Type: Report from Study
  Country: BR (occurrence: BR)
  Receive Date: 20210106
  Receipt Date: 20210212
  Transmission Date: 20210419
  Serious: Yes (Life-Threatening, Other)
  Sender: FDA-Public Use
  Company Number: BR-GILEAD-2021-0511551

PATIENT
  Age: 56 Year
  Sex: Male
  Weight: 114 kg

DRUGS (53)
  1. PLACEBO [Suspect]
     Active Substance: UNSPECIFIED INGREDIENT
     Indication: COVID-19 PNEUMONIA
     Dosage: UNK
     Route: 042
     Dates: start: 20201228
  2. OXYGEN. [Concomitant]
     Active Substance: OXYGEN
     Dosage: 50 %
     Route: 007
     Dates: start: 20201231
  3. OXYGEN. [Concomitant]
     Active Substance: OXYGEN
     Dosage: 70 %
     Route: 007
     Dates: start: 20201230
  4. OXYGEN. [Concomitant]
     Active Substance: OXYGEN
     Dosage: 50 %
     Route: 007
     Dates: start: 20210104
  5. OXYGEN. [Concomitant]
     Active Substance: OXYGEN
     Dosage: 40 UNK
     Route: 007
     Dates: start: 20210103
  6. OXYGEN. [Concomitant]
     Active Substance: OXYGEN
     Dosage: 100 UNK
     Route: 007
     Dates: start: 20210113
  7. OXYGEN. [Concomitant]
     Active Substance: OXYGEN
     Dosage: 45 UNK
     Route: 007
     Dates: start: 20210103
  8. OXYGEN. [Concomitant]
     Active Substance: OXYGEN
     Dosage: 70 UNK
     Route: 007
     Dates: start: 20200108
  9. BROMOPRIDE [Concomitant]
     Active Substance: BROMOPRIDE
     Indication: NAUSEA
     Dates: start: 20201228
  10. CYCLOBENZAPRINE. [Concomitant]
     Active Substance: CYCLOBENZAPRINE
     Indication: COVID-19
     Dates: start: 20201228
  11. OXYGEN. [Concomitant]
     Active Substance: OXYGEN
     Dosage: 14 L/MIN
     Route: 055
     Dates: start: 20201228
  12. OXYGEN. [Concomitant]
     Active Substance: OXYGEN
     Dosage: 45 %
     Route: 007
     Dates: start: 20210103
  13. OXYGEN. [Concomitant]
     Active Substance: OXYGEN
     Dosage: 40 %
     Route: 007
     Dates: start: 20210104
  14. OXYGEN. [Concomitant]
     Active Substance: OXYGEN
     Dosage: 50 %
     Route: 007
     Dates: start: 20210101
  15. OXYGEN. [Concomitant]
     Active Substance: OXYGEN
     Dosage: 70 UNK
     Route: 007
     Dates: start: 20210108
  16. OXYGEN. [Concomitant]
     Active Substance: OXYGEN
     Dosage: 55 UNK
     Route: 007
     Dates: start: 20210110
  17. OXYGEN. [Concomitant]
     Active Substance: OXYGEN
     Dosage: 40 UNK
     Route: 007
     Dates: start: 20210111
  18. DEXAMETHASONE. [Concomitant]
     Active Substance: DEXAMETHASONE
     Indication: COVID-19
     Dates: start: 20201228
  19. OXYGEN. [Concomitant]
     Active Substance: OXYGEN
     Dosage: 50 %
     Route: 007
     Dates: start: 20210105
  20. OXYGEN. [Concomitant]
     Active Substance: OXYGEN
     Dosage: 70 UNK
     Route: 007
     Dates: start: 20210106
  21. OXYGEN. [Concomitant]
     Active Substance: OXYGEN
     Dosage: 40 UNK
     Route: 007
     Dates: start: 20210111
  22. OXYGEN. [Concomitant]
     Active Substance: OXYGEN
     Dosage: 60 UNK
     Route: 007
     Dates: start: 20200109
  23. REMDESIVIR. [Suspect]
     Active Substance: REMDESIVIR
     Indication: COVID-19 PNEUMONIA
     Dosage: 100 ML, QD
     Route: 042
     Dates: start: 20201228
  24. REMDESIVIR. [Suspect]
     Active Substance: REMDESIVIR
     Dosage: 100 ML, QD
     Route: 042
     Dates: start: 20201228
  25. NORADRENALINE [NOREPINEPHRINE] [Concomitant]
     Active Substance: NOREPINEPHRINE
  26. MIDAZOLAM. [Concomitant]
     Active Substance: MIDAZOLAM
     Dosage: 100 MG
     Dates: start: 20201229, end: 20210114
  27. OXYGEN. [Concomitant]
     Active Substance: OXYGEN
     Dosage: 80 UNK
     Route: 007
     Dates: start: 20210107
  28. OXYGEN. [Concomitant]
     Active Substance: OXYGEN
     Dosage: 50 UNK
     Route: 007
     Dates: start: 20210110
  29. OXYGEN. [Concomitant]
     Active Substance: OXYGEN
     Dosage: 40 UNK
     Route: 007
     Dates: start: 20210112
  30. OXYGEN. [Concomitant]
     Active Substance: OXYGEN
     Dosage: 80 UNK
     Route: 007
     Dates: start: 20210107
  31. INSULIN [Concomitant]
     Active Substance: INSULIN NOS
     Indication: DIABETES MELLITUS
     Dates: start: 20201228
  32. ROCURONIUM [Concomitant]
     Active Substance: ROCURONIUM BROMIDE
     Dosage: UNK
     Dates: start: 20201229, end: 20210114
  33. OXYGEN. [Concomitant]
     Active Substance: OXYGEN
     Dosage: 50 %
     Route: 007
     Dates: start: 20210101
  34. OXYGEN. [Concomitant]
     Active Substance: OXYGEN
     Dosage: 65 UNK
     Route: 007
     Dates: start: 20210109
  35. OXYGEN. [Concomitant]
     Active Substance: OXYGEN
     Dosage: 40 UNK
     Route: 007
     Dates: start: 20210113
  36. OXYGEN. [Concomitant]
     Active Substance: OXYGEN
     Dosage: 15 L/MIN
     Route: 055
     Dates: start: 20201228
  37. OXYGEN. [Concomitant]
     Active Substance: OXYGEN
     Dosage: 80 UNK
     Route: 007
     Dates: start: 20210114
  38. DIPYRONE [Concomitant]
     Active Substance: DIPYRONE
     Indication: COVID-19
     Dates: start: 20201228
  39. OXYGEN. [Concomitant]
     Active Substance: OXYGEN
     Dosage: 60 %
     Route: 007
     Dates: start: 20201231
  40. OXYGEN. [Concomitant]
     Active Substance: OXYGEN
     Dosage: 50 %
     Route: 007
     Dates: start: 20201230
  41. OXYGEN. [Concomitant]
     Active Substance: OXYGEN
     Dosage: 50 %
     Route: 007
     Dates: start: 20210102
  42. OXYGEN. [Concomitant]
     Active Substance: OXYGEN
     Dosage: 60 UNK
     Route: 007
     Dates: start: 20210109
  43. OXYGEN. [Concomitant]
     Active Substance: OXYGEN
     Dosage: 60 UNK
     Route: 007
     Dates: start: 20201231
  44. FENTANYL. [Concomitant]
     Active Substance: FENTANYL
     Dosage: UNK
     Dates: start: 20201229, end: 20210114
  45. DEXTROCETAMINE [Concomitant]
  46. REMDESIVIR. [Suspect]
     Active Substance: REMDESIVIR
     Dosage: 100 ML, QD
     Route: 042
     Dates: start: 20201228
  47. OXYGEN. [Concomitant]
     Active Substance: OXYGEN
     Dosage: 15 L/MIN
     Route: 055
     Dates: start: 20201228
  48. OXYGEN. [Concomitant]
     Active Substance: OXYGEN
     Dosage: 100 %
     Route: 007
     Dates: start: 20201229
  49. OXYGEN. [Concomitant]
     Active Substance: OXYGEN
     Dosage: 50 %
     Route: 007
     Dates: start: 20210104
  50. OXYGEN. [Concomitant]
     Active Substance: OXYGEN
     Dosage: 70 UNK
     Route: 007
     Dates: start: 20210107
  51. OXYGEN. [Concomitant]
     Active Substance: OXYGEN
     Dosage: 80 UNK
     Route: 007
     Dates: start: 20210114
  52. OXYGEN. [Concomitant]
     Active Substance: OXYGEN
     Dosage: 40 UNK
     Route: 007
     Dates: start: 20210112
  53. AMIODARONE [Concomitant]
     Active Substance: AMIODARONE
     Indication: ATRIAL FIBRILLATION
     Dosage: 900 MG
     Dates: start: 20210104, end: 20210104

REACTIONS (2)
  - Renal impairment [Recovering/Resolving]
  - Septic shock [Recovering/Resolving]

NARRATIVE: CASE EVENT DATE: 20201230
